FAERS Safety Report 13416293 (Version 3)
Quarter: 2019Q1

REPORT INFORMATION
  Report Type: Spontaneous
  Country: JP (occurrence: JP)
  Receive Date: 20170407
  Receipt Date: 20190205
  Transmission Date: 20190417
  Serious: Yes (Death, Hospitalization)
  Sender: FDA-Public Use
  Company Number: JP-PFIZER INC-2017149271

PATIENT
  Age: 68 Year
  Sex: Female

DRUGS (3)
  1. PREDNISOLONE. [Concomitant]
     Active Substance: PREDNISOLONE
     Dosage: 20 MG, UNK
  2. PREDNISOLONE. [Concomitant]
     Active Substance: PREDNISOLONE
     Indication: RHEUMATOID ARTHRITIS
     Dosage: LOW DOSE
  3. METHOTREXATE SODIUM. [Suspect]
     Active Substance: METHOTREXATE SODIUM
     Indication: RHEUMATOID ARTHRITIS
     Dosage: 6 MG, PER WEEK

REACTIONS (6)
  - Lymphoproliferative disorder [Unknown]
  - Pneumonia bacterial [Unknown]
  - Cardio-respiratory arrest [Fatal]
  - Blood immunoglobulin M abnormal [Unknown]
  - Systemic mycosis [Unknown]
  - Plasmablastic lymphoma [Unknown]
